FAERS Safety Report 9888353 (Version 2)
Quarter: 2014Q1

REPORT INFORMATION
  Report Type: Spontaneous
  Country: JP (occurrence: None)
  Receive Date: 20140207
  Receipt Date: 20140221
  Transmission Date: 20141002
  Serious: Yes (Hospitalization)
  Sender: FDA-Public Use
  Company Number: JP-014580

PATIENT
  Age: 76 Year
  Sex: Male
  Weight: 45.1 kg

DRUGS (7)
  1. GONAX [Suspect]
     Indication: PROSTATE CANCER METASTATIC
     Route: 058
     Dates: start: 20130723, end: 20130723
  2. DECADRON [Suspect]
     Indication: PROSTATE CANCER METASTATIC
     Route: 048
     Dates: start: 20080502, end: 20090709
  3. TAXOTERE [Suspect]
     Indication: PROSTATE CANCER METASTATIC
     Route: 041
     Dates: start: 201001, end: 201111
  4. ZOLADEX [Concomitant]
  5. CASODEX [Concomitant]
  6. ESTRACYT [Concomitant]
  7. NESP [Concomitant]

REACTIONS (17)
  - Skin exfoliation [None]
  - Haemorrhage subcutaneous [None]
  - Platelet count increased [None]
  - Abdominal discomfort [None]
  - Herpes zoster [None]
  - Ophthalmic herpes simplex [None]
  - Erythema [None]
  - Rash [None]
  - Fall [None]
  - Contusion [None]
  - Heat illness [None]
  - Transient ischaemic attack [None]
  - Tooth fracture [None]
  - Prostatic specific antigen increased [None]
  - Decreased appetite [None]
  - Injection site erosion [None]
  - Malignant melanoma [None]
